FAERS Safety Report 17907126 (Version 13)
Quarter: 2025Q3

REPORT INFORMATION
  Report Type: Spontaneous
  Country: EU (occurrence: EU)
  Receive Date: 20200617
  Receipt Date: 20250903
  Transmission Date: 20251020
  Serious: Yes (Hospitalization, Other)
  Sender: MYLAN
  Company Number: EU-GEN-2020-1153

PATIENT
  Age: 42 Year
  Sex: Female

DRUGS (48)
  1. AMLODIPINE [Interacting]
     Active Substance: AMLODIPINE BESYLATE
     Indication: Hypertension
  2. AMLODIPINE [Interacting]
     Active Substance: AMLODIPINE BESYLATE
  3. QUETIAPINE [Interacting]
     Active Substance: QUETIAPINE
     Indication: Product used for unknown indication
     Dosage: 25 MILLIGRAM, QD BEFORE SLEEP (25 MG AT NIGHT)
  4. QUETIAPINE [Interacting]
     Active Substance: QUETIAPINE
     Dosage: 25 MILLIGRAM, QD BEFORE SLEEP (25 MG AT NIGHT)
  5. DULOXETINE [Interacting]
     Active Substance: DULOXETINE
     Indication: Hypertension
     Dosage: 90 MILLIGRAM, QD
  6. DULOXETINE [Interacting]
     Active Substance: DULOXETINE
     Dosage: 90 MILLIGRAM, QD
  7. DULOXETINE [Interacting]
     Active Substance: DULOXETINE
  8. OLANZAPINE [Interacting]
     Active Substance: OLANZAPINE
     Indication: Antiemetic supportive care
     Dosage: 5 MILLIGRAM PER DAY
     Route: 065
  9. OLANZAPINE [Interacting]
     Active Substance: OLANZAPINE
     Indication: Vomiting
     Dosage: 10 MILLIGRAM, QD  (5 MILLIGRAM)
  10. OLANZAPINE [Interacting]
     Active Substance: OLANZAPINE
     Indication: Nausea
     Dosage: 10 MILLIGRAM
  11. OLANZAPINE [Interacting]
     Active Substance: OLANZAPINE
     Indication: Prophylaxis of nausea and vomiting
  12. OLANZAPINE [Interacting]
     Active Substance: OLANZAPINE
  13. OLANZAPINE [Interacting]
     Active Substance: OLANZAPINE
  14. OLANZAPINE [Interacting]
     Active Substance: OLANZAPINE
     Dosage: 5 MILLIGRAM PER DAY
  15. OLANZAPINE [Interacting]
     Active Substance: OLANZAPINE
     Dosage: 10 MILLIGRAM
  16. OLANZAPINE [Interacting]
     Active Substance: OLANZAPINE
  17. PREGABALIN [Suspect]
     Active Substance: PREGABALIN
     Indication: Hypertension
     Dosage: 300 MILLIGRAM, QD
  18. PREGABALIN [Suspect]
     Active Substance: PREGABALIN
  19. PREGABALIN [Suspect]
     Active Substance: PREGABALIN
     Dosage: 300 MILLIGRAM, QD
  20. AMLODIPINE\PERINDOPRIL [Interacting]
     Active Substance: AMLODIPINE\PERINDOPRIL
     Indication: Hypertension
     Dosage: 1 DOSAGE FORM(1 DF  10 MG PERINDOPRIL  10 MG AMLODIPINE)
  21. AMLODIPINE\PERINDOPRIL [Interacting]
     Active Substance: AMLODIPINE\PERINDOPRIL
     Dosage: 1 DOSAGE FORM, QD
  22. CIPROFLOXACIN [Interacting]
     Active Substance: CIPROFLOXACIN
     Indication: Dysuria
     Dosage: 500 MILLIGRAM, BID(2 X 500 MG P.O.)
  23. CIPROFLOXACIN [Interacting]
     Active Substance: CIPROFLOXACIN
     Indication: Palliative care
     Dosage: 1000 MILLIGRAM, QD (500 MG, BID)
  24. CIPROFLOXACIN [Interacting]
     Active Substance: CIPROFLOXACIN
  25. CIPROFLOXACIN [Interacting]
     Active Substance: CIPROFLOXACIN
     Dosage: 500 MILLIGRAM, QD
  26. CIPROFLOXACIN [Suspect]
     Active Substance: CIPROFLOXACIN
     Indication: Dysuria
  27. DIPHENHYDRAMINE [Suspect]
     Active Substance: DIPHENHYDRAMINE
     Indication: Product used for unknown indication
  28. CIPROFLOXACIN HYDROCHLORIDE [Suspect]
     Active Substance: CIPROFLOXACIN HYDROCHLORIDE
     Indication: Dysuria
     Dosage: 1000 MILLIGRAM, QD
  29. DEXAMETHASONE [Suspect]
     Active Substance: DEXAMETHASONE
     Indication: Vomiting
  30. DEXAMETHASONE [Suspect]
     Active Substance: DEXAMETHASONE
     Indication: Nausea
  31. DEXAMETHASONE [Suspect]
     Active Substance: DEXAMETHASONE
     Indication: Antiemetic supportive care
  32. METOCLOPRAMIDE [Suspect]
     Active Substance: METOCLOPRAMIDE
     Indication: Nausea
  33. METOCLOPRAMIDE [Suspect]
     Active Substance: METOCLOPRAMIDE
     Indication: Vomiting
  34. METOCLOPRAMIDE [Suspect]
     Active Substance: METOCLOPRAMIDE
     Indication: Antiemetic supportive care
  35. PERINDOPRIL [Suspect]
     Active Substance: PERINDOPRIL
     Indication: Hypertension
  36. PERINDOPRIL [Suspect]
     Active Substance: PERINDOPRIL
  37. PERINDOPRIL [Suspect]
     Active Substance: PERINDOPRIL
  38. MORPHINE [Interacting]
     Active Substance: MORPHINE
     Indication: Breast cancer
     Dosage: 80 MG, 2X PER DAY (80 MILLIGRAM, BID )
  39. MORPHINE [Interacting]
     Active Substance: MORPHINE
     Dosage: 80 MILLIGRAM, QD (8 MILLIGRAM 0.5 DAY)
  40. MORPHINE [Interacting]
     Active Substance: MORPHINE
     Dosage: 80 MILLIGRAM, BID (2 X 80 MG)
  41. MORPHINE [Interacting]
     Active Substance: MORPHINE
  42. DIMENHYDRINATE [Suspect]
     Active Substance: DIMENHYDRINATE
     Indication: Vomiting
  43. DIMENHYDRINATE [Suspect]
     Active Substance: DIMENHYDRINATE
     Indication: Nausea
  44. DIMENHYDRINATE [Suspect]
     Active Substance: DIMENHYDRINATE
     Indication: Antiemetic supportive care
  45. CIPROFLOXACIN [Concomitant]
     Active Substance: CIPROFLOXACIN
  46. METOCLOPRAMIDE [Concomitant]
     Active Substance: METOCLOPRAMIDE
     Indication: Nausea
  47. METOCLOPRAMIDE [Concomitant]
     Active Substance: METOCLOPRAMIDE
     Indication: Antiemetic supportive care
  48. MIDAZOLAM [Concomitant]
     Active Substance: MIDAZOLAM
     Indication: Product used for unknown indication

REACTIONS (22)
  - Toxicity to various agents [Unknown]
  - Drug level increased [Unknown]
  - Tinnitus [Not Recovered/Not Resolved]
  - Dysuria [Unknown]
  - Anxiety [Not Recovered/Not Resolved]
  - Thirst [Not Recovered/Not Resolved]
  - Paraesthesia [Not Recovered/Not Resolved]
  - Urinary retention [Not Recovered/Not Resolved]
  - Nausea [Recovering/Resolving]
  - Restlessness [Unknown]
  - Vomiting [Not Recovered/Not Resolved]
  - Drug interaction [Not Recovered/Not Resolved]
  - Polydipsia [Unknown]
  - Off label use [Unknown]
  - Drug ineffective [Unknown]
  - Medication error [Unknown]
  - Drug ineffective for unapproved indication [Unknown]
  - Contraindicated product administered [Unknown]
  - Therapeutic product effect incomplete [Unknown]
  - Product prescribing error [Unknown]
  - Drug effective for unapproved indication [Unknown]
  - Product use in unapproved indication [Unknown]

NARRATIVE: CASE EVENT DATE: 20200101
